FAERS Safety Report 14191091 (Version 4)
Quarter: 2018Q1

REPORT INFORMATION
  Report Type: Spontaneous
  Country: US (occurrence: US)
  Receive Date: 20171115
  Receipt Date: 20180202
  Transmission Date: 20180508
  Serious: Yes (Other)
  Sender: FDA-Public Use
  Company Number: US-SA-2017SA223077

PATIENT
  Sex: Female

DRUGS (1)
  1. AUBAGIO [Suspect]
     Active Substance: TERIFLUNOMIDE
     Indication: MULTIPLE SCLEROSIS
     Route: 048
     Dates: start: 2017

REACTIONS (13)
  - Multiple sclerosis relapse [Unknown]
  - Visual impairment [Unknown]
  - Neck pain [Unknown]
  - Alopecia [Recovered/Resolved]
  - JC virus infection [Recovering/Resolving]
  - Poor quality sleep [Unknown]
  - Abdominal discomfort [Recovered/Resolved]
  - Depression [Unknown]
  - Stress [Recovering/Resolving]
  - Alopecia [Unknown]
  - Unevaluable event [Unknown]
  - Headache [Unknown]
  - Dizziness [Unknown]

NARRATIVE: CASE EVENT DATE: 2017
